FAERS Safety Report 7912498-2 (Version None)
Quarter: 2011Q4

REPORT INFORMATION
  Report Type: 
  Country: None (occurrence: None)
  Receive Date: 20111114
  Receipt Date: 20111111
  Transmission Date: 20120403
  Serious: Yes (Hospitalization)
  Sender: FDA-Public Use
  Company Number: US-PFIZER INC-2011277299

PATIENT
  Sex: Male
  Weight: 83.9 kg

DRUGS (3)
  1. LEVOTHYROXINE [Concomitant]
     Indication: THYROID DISORDER
     Dosage: 50 UG, DAILY
  2. CYMBALTA [Concomitant]
     Indication: DEPRESSION
     Dosage: 60 MG, DAILY
  3. XANAX [Suspect]
     Indication: PANIC ATTACK
     Dosage: 2 MG, 3X/DAY
     Route: 048

REACTIONS (3)
  - DRUG INEFFECTIVE [None]
  - PANIC ATTACK [None]
  - INSOMNIA [None]
